FAERS Safety Report 12379146 (Version 6)
Quarter: 2017Q3

REPORT INFORMATION
  Report Type: Report from Study
  Country: CA (occurrence: CA)
  Receive Date: 20160517
  Receipt Date: 20170910
  Transmission Date: 20171127
  Serious: Yes (Other)
  Sender: FDA-Public Use
  Company Number: PHHY2015CA113479

PATIENT
  Age: 51 Year
  Sex: Female

DRUGS (5)
  1. COSENTYX [Suspect]
     Active Substance: SECUKINUMAB
     Indication: PSORIASIS
     Dosage: 300 MG, QW
     Route: 058
     Dates: start: 20150824, end: 20150914
  2. METHOTREXATE. [Suspect]
     Active Substance: METHOTREXATE
     Indication: PRODUCT USED FOR UNKNOWN INDICATION
     Route: 065
  3. COSENTYX [Suspect]
     Active Substance: SECUKINUMAB
     Dosage: 300 MG, QW
     Route: 058
     Dates: start: 20170809, end: 20170830
  4. COAL TAR. [Suspect]
     Active Substance: COAL TAR
     Indication: PRODUCT USED FOR UNKNOWN INDICATION
     Route: 061
  5. COSENTYX [Suspect]
     Active Substance: SECUKINUMAB
     Dosage: 300 MG, QMO
     Route: 058
     Dates: start: 20150922, end: 20160323

REACTIONS (21)
  - Clostridium difficile infection [Recovering/Resolving]
  - Diarrhoea [Not Recovered/Not Resolved]
  - Abdominal pain [Not Recovered/Not Resolved]
  - Pyrexia [Unknown]
  - Oropharyngeal pain [Unknown]
  - Rash [Unknown]
  - Hypoaesthesia oral [Unknown]
  - Abdominal discomfort [Not Recovered/Not Resolved]
  - Hepatic enzyme increased [Unknown]
  - Inappropriate schedule of drug administration [Unknown]
  - Skin reaction [Unknown]
  - Headache [Unknown]
  - Infection parasitic [Unknown]
  - Malaise [Unknown]
  - Teeth brittle [Unknown]
  - Colitis [Not Recovered/Not Resolved]
  - Blister [Unknown]
  - Skin fissures [Unknown]
  - Influenza [Unknown]
  - Pain in extremity [Unknown]
  - Irritable bowel syndrome [Unknown]

NARRATIVE: CASE EVENT DATE: 2015
